FAERS Safety Report 15231880 (Version 1)
Quarter: 2018Q3

REPORT INFORMATION
  Report Type: Spontaneous
  Country: US (occurrence: US)
  Receive Date: 20180802
  Receipt Date: 20180802
  Transmission Date: 20181010
  Serious: Yes (Hospitalization)
  Sender: FDA-Public Use
  Company Number: US-APOTEX-2018AP018457

PATIENT
  Age: 2 Year
  Sex: Male
  Weight: 14.5 kg

DRUGS (1)
  1. TRAZODONE HYDROCHLORIDE. [Suspect]
     Active Substance: TRAZODONE HYDROCHLORIDE
     Indication: PRODUCT USED FOR UNKNOWN INDICATION
     Dosage: 100 MG (6.9 MG/KG), SINGLE
     Route: 048

REACTIONS (3)
  - Accidental overdose [Unknown]
  - Accidental exposure to product by child [Unknown]
  - Priapism [Recovering/Resolving]
